FAERS Safety Report 25815950 (Version 1)
Quarter: 2025Q3

REPORT INFORMATION
  Report Type: Spontaneous
  Country: EU (occurrence: EU)
  Receive Date: 20250918
  Receipt Date: 20250918
  Transmission Date: 20251020
  Serious: Yes (Other)
  Sender: SANDOZ
  Company Number: EU-BRISTOL-MYERS SQUIBB COMPANY-2023-066007

PATIENT
  Age: 67 Year
  Sex: Male

DRUGS (18)
  1. DENOSUMAB [Suspect]
     Active Substance: DENOSUMAB
     Indication: Prophylaxis
     Route: 065
     Dates: start: 202101, end: 202209
  2. DENOSUMAB [Suspect]
     Active Substance: DENOSUMAB
     Indication: Metastases to bone
  3. MARCUMAR [Suspect]
     Active Substance: PHENPROCOUMON
     Indication: Product used for unknown indication
     Route: 065
  4. OPDIVO [Suspect]
     Active Substance: NIVOLUMAB
     Indication: Renal cell carcinoma
     Dosage: 3 MG/KG, Q3W (1 EVERY 3 WEEK)
     Route: 042
     Dates: start: 20210809
  5. YERVOY [Suspect]
     Active Substance: IPILIMUMAB
     Indication: Renal cell carcinoma
     Dosage: 1 MILLIGRAM/KILOGRAM, Q3W
     Route: 042
     Dates: start: 20210809, end: 20210809
  6. ATORVASTATIN [Concomitant]
     Active Substance: ATORVASTATIN
     Indication: Product used for unknown indication
     Route: 065
     Dates: start: 20210715
  7. BISOPROLOL [Concomitant]
     Active Substance: BISOPROLOL
     Indication: Cardiovascular disorder
     Route: 065
     Dates: start: 20210722
  8. BISOPROLOL [Concomitant]
     Active Substance: BISOPROLOL
     Indication: Neoplasm malignant
  9. CETIRIZINE [Concomitant]
     Active Substance: CETIRIZINE HYDROCHLORIDE
     Indication: Product used for unknown indication
     Route: 065
     Dates: start: 20210908, end: 20220715
  10. CALCIUM CARBONATE\CHOLECALCIFEROL [Concomitant]
     Active Substance: CALCIUM CARBONATE\CHOLECALCIFEROL
     Indication: Prophylaxis
     Route: 065
     Dates: start: 20211118
  11. METAMIZOLE [Concomitant]
     Active Substance: METAMIZOLE
     Indication: Neoplasm malignant
     Route: 065
     Dates: start: 20210825, end: 20220715
  12. MIRTAZAPINE [Concomitant]
     Active Substance: MIRTAZAPINE
     Indication: Prophylaxis
     Route: 065
     Dates: start: 20210830, end: 20211118
  13. NALOXONE HYDROCHLORIDE\TILIDINE HYDROCHLORIDE [Concomitant]
     Active Substance: NALOXONE HYDROCHLORIDE\TILIDINE HYDROCHLORIDE
     Indication: Neoplasm malignant
     Route: 065
  14. PANTOPRAZOLE [Concomitant]
     Active Substance: PANTOPRAZOLE
     Indication: Prophylaxis
     Route: 065
     Dates: start: 20210722
  15. PHENPROCOUMON [Concomitant]
     Active Substance: PHENPROCOUMON
     Indication: Product used for unknown indication
     Route: 065
  16. RAMIPRIL [Concomitant]
     Active Substance: RAMIPRIL
     Indication: Cardiovascular disorder
     Route: 065
     Dates: start: 20210722
  17. HYDROCHLOROTHIAZIDE\RAMIPRIL [Concomitant]
     Active Substance: HYDROCHLOROTHIAZIDE\RAMIPRIL
     Indication: Cardiovascular disorder
     Route: 065
     Dates: start: 20211118, end: 20220715
  18. CLEMASTINE FUMARATE [Concomitant]
     Active Substance: CLEMASTINE FUMARATE
     Indication: Product used for unknown indication
     Route: 065
     Dates: start: 20211118, end: 20220715

REACTIONS (6)
  - Osteonecrosis of jaw [Unknown]
  - Keratitis [Recovered/Resolved with Sequelae]
  - Eye haemorrhage [Unknown]
  - Ocular hyperaemia [Recovered/Resolved with Sequelae]
  - International normalised ratio increased [Unknown]
  - Off label use [Unknown]

NARRATIVE: CASE EVENT DATE: 20210811
